FAERS Safety Report 21579080 (Version 1)
Quarter: 2022Q4

REPORT INFORMATION
  Report Type: Spontaneous
  Country: ES (occurrence: ES)
  Receive Date: 20221110
  Receipt Date: 20221110
  Transmission Date: 20230113
  Serious: Yes (Other)
  Sender: FDA-Public Use
  Company Number: None

PATIENT
  Age: 49 Year
  Sex: Female

DRUGS (1)
  1. ERELZI [Suspect]
     Active Substance: ETANERCEPT-SZZS
     Indication: Rheumatoid arthritis
     Dosage: 50 MG, QW (4 PRE-FILLED SYRINGES OF 1 ML)
     Route: 058
     Dates: start: 20200910, end: 20211110

REACTIONS (1)
  - Paradoxical psoriasis [Recovered/Resolved]

NARRATIVE: CASE EVENT DATE: 20201103
